FAERS Safety Report 9285648 (Version 2)
Quarter: 2013Q4

REPORT INFORMATION
  Report Type: Spontaneous
  Country: US (occurrence: US)
  Receive Date: 20130513
  Receipt Date: 20131011
  Transmission Date: 20140711
  Serious: Yes (Death, Hospitalization, Other)
  Sender: FDA-Public Use
  Company Number: US-B.I. PHARMACEUTICALS,INC./RIDGEFIELD-2013-BI-13171BP

PATIENT
  Age: 64 Year
  Sex: Male
  Weight: 124.28 kg

DRUGS (20)
  1. PRADAXA [Suspect]
     Indication: ANTICOAGULANT THERAPY
     Dosage: 300 MG
     Route: 048
     Dates: start: 20120728, end: 20120805
  2. PRADAXA [Suspect]
     Indication: ATRIAL FIBRILLATION
  3. OXYCODONE [Concomitant]
     Route: 048
  4. XANAX [Concomitant]
     Route: 048
  5. ASPIRIN [Concomitant]
     Dosage: 325 MG
     Route: 048
  6. BISACODYL [Concomitant]
     Dosage: 5 MG
     Route: 048
  7. GLYBURIDE [Concomitant]
     Dosage: 20 MG
     Route: 048
  8. NPH INSULIN [Concomitant]
     Indication: TYPE 2 DIABETES MELLITUS
     Dosage: 25 U
     Route: 058
  9. IMDUR [Concomitant]
     Dosage: 60 MG
     Route: 048
  10. LASIX [Concomitant]
     Dosage: 160 MG
     Route: 048
     Dates: start: 201002, end: 20120814
  11. LISINOPRIL [Concomitant]
     Dosage: 10 MG
     Route: 048
     Dates: start: 201102, end: 20120814
  12. ESZOPICLONE [Concomitant]
     Dosage: 2 MG
     Route: 048
  13. CHLORIDE [Concomitant]
     Dosage: 20 MEQ
     Route: 048
  14. MIRAPEX [Concomitant]
     Dosage: 0.5 MG
     Route: 048
  15. GABAPENTIN [Concomitant]
     Dosage: 300 MG
     Route: 048
  16. STOOL SOFTENER [Concomitant]
     Dosage: 1 MG
     Route: 048
  17. ZOCOR [Concomitant]
     Dosage: 40 MG
     Route: 048
  18. WELLBUTRIN [Concomitant]
     Dosage: 300 MG
     Route: 048
  19. NORCO [Concomitant]
     Route: 048
  20. OXYGEN [Concomitant]
     Indication: CHRONIC OBSTRUCTIVE PULMONARY DISEASE

REACTIONS (2)
  - Gastrointestinal haemorrhage [Fatal]
  - Renal failure acute [Unknown]
